FAERS Safety Report 18539484 (Version 1)
Quarter: 2020Q4

REPORT INFORMATION
  Report Type: Spontaneous
  Country: US (occurrence: US)
  Receive Date: 20201123
  Receipt Date: 20201123
  Transmission Date: 20210114
  Serious: Yes (Hospitalization)
  Sender: FDA-Public Use
  Company Number: None

PATIENT
  Age: 66 Year
  Sex: Male
  Weight: 104.3 kg

DRUGS (21)
  1. SINGULAIR [Concomitant]
     Active Substance: MONTELUKAST SODIUM
  2. SOLU-MEDROL [Concomitant]
     Active Substance: METHYLPREDNISOLONE SODIUM SUCCINATE
  3. CELEBREX [Concomitant]
     Active Substance: CELECOXIB
  4. KETOROLAC [Concomitant]
     Active Substance: KETOROLAC TROMETHAMINE
  5. BAMLANIVIMAB. [Suspect]
     Active Substance: BAMLANIVIMAB
     Indication: COVID-19
     Dosage: ROUTE: IV OVER 60 MIN
     Route: 042
     Dates: start: 20201119, end: 20201119
  6. APIXABAN [Concomitant]
     Active Substance: APIXABAN
  7. CETIRIZINE [Concomitant]
     Active Substance: CETIRIZINE HYDROCHLORIDE
  8. DOXYCYCLINE. [Concomitant]
     Active Substance: DOXYCYCLINE
  9. ALBUTEROL INHALER [Concomitant]
     Active Substance: ALBUTEROL
  10. CETIRIZINE [Concomitant]
     Active Substance: CETIRIZINE HYDROCHLORIDE
  11. FAMOTIDINE. [Concomitant]
     Active Substance: FAMOTIDINE
  12. DEXAMETHASONE. [Concomitant]
     Active Substance: DEXAMETHASONE
  13. REMDESIVIR. [Concomitant]
     Active Substance: REMDESIVIR
  14. GUAIFENESIN ER [Concomitant]
     Active Substance: GUAIFENESIN
  15. ASPIRIN. [Concomitant]
     Active Substance: ASPIRIN
  16. DEXAMETHASONE. [Concomitant]
     Active Substance: DEXAMETHASONE
  17. ROCEPHIN [Concomitant]
     Active Substance: CEFTRIAXONE SODIUM
  18. FAMOTIDINE. [Concomitant]
     Active Substance: FAMOTIDINE
  19. VITAMIN D3 [Concomitant]
     Active Substance: CHOLECALCIFEROL
  20. ALBUTEROL INHALER [Concomitant]
     Active Substance: ALBUTEROL
  21. ZINC SULFATE. [Concomitant]
     Active Substance: ZINC SULFATE

REACTIONS (1)
  - Intentional product use issue [None]

NARRATIVE: CASE EVENT DATE: 20201120
